FAERS Safety Report 12511282 (Version 1)
Quarter: 2016Q2

REPORT INFORMATION
  Report Type: Spontaneous
  Country: IE (occurrence: IE)
  Receive Date: 20160629
  Receipt Date: 20160629
  Transmission Date: 20160815
  Serious: Yes (Hospitalization)
  Sender: FDA-Public Use
  Company Number: IE-009507513-1606IRL011052

PATIENT
  Age: 38 Year
  Sex: Female

DRUGS (11)
  1. ORGALUTRAN [Suspect]
     Active Substance: GANIRELIX ACETATE
     Indication: IN VITRO FERTILISATION
     Dosage: 250 MICROGRAM, QD
     Route: 058
     Dates: start: 20160313, end: 20160327
  2. CRINONE [Suspect]
     Active Substance: PROGESTERONE
     Dosage: NOCTE
     Dates: start: 20160329, end: 20160330
  3. INOSITOL [Suspect]
     Active Substance: INOSITOL
     Indication: POLYCYSTIC OVARIES
     Dosage: UNK, BID
  4. ELTROXIN [Concomitant]
     Active Substance: LEVOTHYROXINE
     Dosage: MON-FRI
  5. MEPERIDINE HYDROCHLORIDE. [Concomitant]
     Active Substance: MEPERIDINE HYDROCHLORIDE
  6. DIAZEPAN [Concomitant]
     Active Substance: DIAZEPAM
     Route: 042
  7. ELTROXIN [Concomitant]
     Active Substance: LEVOTHYROXINE
     Dosage: SAT + SUN
  8. SERETIDE [Concomitant]
     Active Substance: FLUTICASONE PROPIONATE\SALMETEROL XINAFOATE
     Indication: ASTHMA
  9. PUREGON [Suspect]
     Active Substance: FOLLITROPIN
     Indication: IN VITRO FERTILISATION
     Dosage: 125 IU, QD
     Route: 058
     Dates: start: 20160310, end: 20160326
  10. YASMIN [Suspect]
     Active Substance: DROSPIRENONE\ETHINYL ESTRADIOL
     Dates: end: 20160302
  11. PREGNYL [Suspect]
     Active Substance: CHORIOGONADOTROPIN ALFA
     Indication: IN VITRO FERTILISATION
     Dosage: 10000 IU,
     Route: 058
     Dates: start: 20160327, end: 20160327

REACTIONS (2)
  - Pulmonary embolism [Recovered/Resolved]
  - Dyspnoea [Recovered/Resolved]

NARRATIVE: CASE EVENT DATE: 20160401
